FAERS Safety Report 19146278 (Version 2)
Quarter: 2021Q2

REPORT INFORMATION
  Report Type: Spontaneous
  Country: US (occurrence: US)
  Receive Date: 20210416
  Receipt Date: 20210428
  Transmission Date: 20210717
  Serious: Yes (Hospitalization, Other)
  Sender: FDA-Public Use
  Company Number: US-UNITED THERAPEUTICS-UNT-2021-006326

PATIENT
  Age: 24 Month
  Sex: Male

DRUGS (16)
  1. UNITUXIN [Suspect]
     Active Substance: DINUTUXIMAB
     Dosage: UNK UNK, CYCLICAL (INDUCTION CYCLE 4)
     Route: 041
  2. DEXRAZOXANE. [Suspect]
     Active Substance: DEXRAZOXANE
     Indication: NEUROBLASTOMA
     Dosage: UNK UNK, CYCLICAL  (INDUCTION CYCLE 4)
     Route: 065
  3. VINCRISTINE SULFATE. [Suspect]
     Active Substance: VINCRISTINE SULFATE
     Dosage: UNK UNK, CYCLICAL
     Route: 065
  4. UNITUXIN [Suspect]
     Active Substance: DINUTUXIMAB
     Dosage: UNK UNK, CYCLICAL (2.5 ML/HR)
     Route: 041
  5. VINCRISTINE SULFATE. [Suspect]
     Active Substance: VINCRISTINE SULFATE
     Indication: NEUROBLASTOMA
     Dosage: UNK UNK, CYCLICAL (INDUCTION CYCLE 4)
     Route: 065
  6. ETOPOSIDE. [Suspect]
     Active Substance: ETOPOSIDE
     Indication: NEUROBLASTOMA
     Dosage: UNK UNK, CYCLICAL (INDUCTION CYCLE 5)
     Route: 065
  7. UNITUXIN [Suspect]
     Active Substance: DINUTUXIMAB
     Dosage: UNK UNK, CYCLICAL (INDUCTION CYCLE 5)
     Route: 041
  8. DOXORUBICIN HCL [Suspect]
     Active Substance: DOXORUBICIN HYDROCHLORIDE
     Indication: NEUROBLASTOMA
     Dosage: UNK UNK, CYCLICAL (INDUCTION CYCLE 4)
     Route: 065
  9. DOXORUBICIN HCL [Suspect]
     Active Substance: DOXORUBICIN HYDROCHLORIDE
     Dosage: UNK UNK, CYCLICAL
     Route: 065
  10. MESNA. [Suspect]
     Active Substance: MESNA
     Indication: NEUROBLASTOMA
     Dosage: UNK UNK, CYCLICAL (INDUCTION CYCLE 4)
     Route: 065
  11. SARGRAMOSTIM [Suspect]
     Active Substance: SARGRAMOSTIM
     Indication: NEUROBLASTOMA
     Dosage: UNK UNK, CYCLICAL (INDUCTION CYCLE 4)
     Route: 065
  12. SARGRAMOSTIM [Suspect]
     Active Substance: SARGRAMOSTIM
     Dosage: UNK UNK, CYCLICAL  (INDUCTION CYCLE 5)
     Route: 065
  13. UNITUXIN [Suspect]
     Active Substance: DINUTUXIMAB
     Indication: NEUROBLASTOMA
     Dosage: UNK UNK, CYCLICAL
     Route: 041
  14. CYCLOPHOSPHAMIDE. [Suspect]
     Active Substance: CYCLOPHOSPHAMIDE
     Indication: NEUROBLASTOMA
     Dosage: UNK UNK, CYCLICAL (INDUCTION CYCLE 4)
     Route: 065
  15. CYCLOPHOSPHAMIDE. [Suspect]
     Active Substance: CYCLOPHOSPHAMIDE
     Dosage: UNK UNK, CYCLICAL
     Route: 065
  16. CISPLATIN. [Suspect]
     Active Substance: CISPLATIN
     Indication: NEUROBLASTOMA
     Dosage: UNK UNK, CYCLICAL (INDUCTION CYCLE 5)
     Route: 065

REACTIONS (4)
  - Therapy partial responder [Unknown]
  - Hypotension [Unknown]
  - Drug hypersensitivity [Unknown]
  - Pyrexia [Unknown]
